FAERS Safety Report 23093199 (Version 1)
Quarter: 2023Q4

REPORT INFORMATION
  Report Type: Spontaneous
  Country: GB (occurrence: GB)
  Receive Date: 20231022
  Receipt Date: 20231022
  Transmission Date: 20240110
  Serious: Yes (Hospitalization, Other)
  Sender: FDA-Public Use
  Company Number: None

PATIENT
  Age: 68 Year
  Sex: Male

DRUGS (22)
  1. POTASSIUM HYDROXIDE\POTASSIUM PHOSPHATE, DIBASIC\SODIUM PHOSPHATE, DIB [Suspect]
     Active Substance: POTASSIUM HYDROXIDE\POTASSIUM PHOSPHATE, DIBASIC\SODIUM PHOSPHATE, DIBASIC, ANHYDROUS
     Dosage: NA
  2. ALFENTANIL [Suspect]
     Active Substance: ALFENTANIL
     Dosage: NA
  3. CALCIUM [Suspect]
     Active Substance: CALCIUM
     Dosage: NA
  4. DOXYCYCLINE [Suspect]
     Active Substance: DOXYCYCLINE
     Dosage: NA
     Dates: start: 20230915, end: 20230919
  5. GABAPENTIN [Suspect]
     Active Substance: GABAPENTIN
     Dosage: NA
     Dates: start: 20230912, end: 20230919
  6. GENTAMICIN [Suspect]
     Active Substance: GENTAMICIN
     Dates: start: 20230908, end: 20230908
  7. CALCIUM CHLORIDE\POTASSIUM CHLORIDE\SODIUM CHLORIDE\SODIUM LACTATE [Suspect]
     Active Substance: CALCIUM CHLORIDE\POTASSIUM CHLORIDE\SODIUM CHLORIDE\SODIUM LACTATE
     Dosage: NA
  8. HEPARIN [Suspect]
     Active Substance: HEPARIN SODIUM
     Dosage: CONTINUOUS INFUSION. 16/9 16:00 - 06:00 18/9. THEN RESTARTED 18/9 21:00-19/9 04:00; ;
     Dates: start: 20230916, end: 20230917
  9. LANSOPRAZOLE [Suspect]
     Active Substance: LANSOPRAZOLE
     Dates: start: 20230913, end: 20230920
  10. LEVOFLOXACIN [Suspect]
     Active Substance: LEVOFLOXACIN
     Dosage: UNTIL 18/9, ON 18/9 RECEIVED 500MG OD, THEN 19/9-21/9 250MG OD. ; ; 2 SEPARATED DOSES
     Dates: start: 20230908, end: 20230921
  11. MAGNESIUM [Suspect]
     Active Substance: MAGNESIUM
     Dosage: NA
  12. MEROPENEM [Suspect]
     Active Substance: MEROPENEM
     Dates: start: 20230908, end: 20230913
  13. NICOTINE [Suspect]
     Active Substance: NICOTINE
     Dates: start: 20230911, end: 20230919
  14. NOREPINEPHRINE [Suspect]
     Active Substance: NOREPINEPHRINE
     Dosage: NA
  15. OMEPRAZOLE [Suspect]
     Active Substance: OMEPRAZOLE
     Dosage: NA
     Dates: start: 20230908, end: 20230912
  16. OXYCODONE [Suspect]
     Active Substance: OXYCODONE
     Dosage: NA
     Dates: start: 20230912, end: 20230918
  17. ASCORBIC ACID\VITAMIN B COMPLEX [Suspect]
     Active Substance: ASCORBIC ACID\VITAMIN B COMPLEX
     Dosage: NA
     Dates: start: 20230908, end: 20230922
  18. ACETAMINOPHEN [Suspect]
     Active Substance: ACETAMINOPHEN
     Dosage: NA
     Dates: start: 20230908
  19. SODIUM PHOSPHATE, MONOBASIC, ANHYDROUS [Suspect]
     Active Substance: SODIUM PHOSPHATE, MONOBASIC, ANHYDROUS
     Dates: start: 20230910, end: 20230914
  20. POTASSIUM CHLORIDE [Suspect]
     Active Substance: POTASSIUM CHLORIDE
     Dosage: NA
  21. PROPOFOL [Suspect]
     Active Substance: PROPOFOL
     Dosage: NA
  22. PIPERACILLIN SODIUM\TAZOBACTAM SODIUM [Suspect]
     Active Substance: PIPERACILLIN SODIUM\TAZOBACTAM SODIUM
     Dates: start: 20230913, end: 20230919

REACTIONS (1)
  - Methaemoglobinaemia [Recovered/Resolved]

NARRATIVE: CASE EVENT DATE: 20230918
